FAERS Safety Report 24381782 (Version 1)
Quarter: 2024Q4

REPORT INFORMATION
  Report Type: Spontaneous
  Country: NE (occurrence: NE)
  Receive Date: 20241001
  Receipt Date: 20241001
  Transmission Date: 20250114
  Serious: Yes (Other)
  Sender: RANBAXY
  Company Number: NE-SUN PHARMACEUTICAL INDUSTRIES LTD-2024RR-470482

PATIENT
  Age: 32 Year
  Sex: Female

DRUGS (3)
  1. ACETAMINOPHEN [Suspect]
     Active Substance: ACETAMINOPHEN
     Indication: Product used for unknown indication
     Dosage: 1 GRAM EVERY 6 H
     Route: 065
  2. KETOPROFEN [Suspect]
     Active Substance: KETOPROFEN
     Indication: Product used for unknown indication
     Dosage: 100 MILLIGRAM EVERY 12 H
     Route: 065
  3. CEFTRIAXONE [Suspect]
     Active Substance: CEFTRIAXONE
     Indication: Product used for unknown indication
     Dosage: 2 GRAM, DAILY
     Route: 065

REACTIONS (2)
  - Exposure during pregnancy [Unknown]
  - Drug ineffective [Unknown]
